FAERS Safety Report 26203905 (Version 1)
Quarter: 2025Q4

REPORT INFORMATION
  Report Type: Spontaneous
  Country: CA (occurrence: CA)
  Receive Date: 20251226
  Receipt Date: 20251226
  Transmission Date: 20260118
  Serious: Yes (Congenital Anomaly)
  Sender: BRISTOL-MYERS SQUIBB COMPANY
  Company Number: CA-BRISTOL-MYERS SQUIBB COMPANY-2025-172490

PATIENT

DRUGS (237)
  1. ORENCIA [Suspect]
     Active Substance: ABATACEPT
     Indication: Product used for unknown indication
  2. ORENCIA [Suspect]
     Active Substance: ABATACEPT
     Indication: Product used for unknown indication
  3. TRIAMCINOLONE [Concomitant]
     Active Substance: TRIAMCINOLONE
     Indication: Product used for unknown indication
  4. TRIAMCINOLONE [Concomitant]
     Active Substance: TRIAMCINOLONE
  5. ACETAMINOPHEN [Concomitant]
     Active Substance: ACETAMINOPHEN
     Indication: Product used for unknown indication
  6. ACETAMINOPHEN AND CODEINE [Concomitant]
     Active Substance: ACETAMINOPHEN\CODEINE PHOSPHATE
     Indication: Product used for unknown indication
  7. ACETAMINOPHEN AND CODEINE [Concomitant]
     Active Substance: ACETAMINOPHEN\CODEINE PHOSPHATE
  8. ACTEMRA [Concomitant]
     Active Substance: TOCILIZUMAB
     Indication: Product used for unknown indication
  9. ACTEMRA [Concomitant]
     Active Substance: TOCILIZUMAB
  10. ACTEMRA [Concomitant]
     Active Substance: TOCILIZUMAB
  11. ACTEMRA [Concomitant]
     Active Substance: TOCILIZUMAB
  12. ACTEMRA [Concomitant]
     Active Substance: TOCILIZUMAB
  13. ACTEMRA [Concomitant]
     Active Substance: TOCILIZUMAB
  14. ACTEMRA [Concomitant]
     Active Substance: TOCILIZUMAB
  15. ACTEMRA [Concomitant]
     Active Substance: TOCILIZUMAB
  16. ACTEMRA [Concomitant]
     Active Substance: TOCILIZUMAB
  17. ACTEMRA [Concomitant]
     Active Substance: TOCILIZUMAB
  18. ACTEMRA [Concomitant]
     Active Substance: TOCILIZUMAB
  19. ACTEMRA [Concomitant]
     Active Substance: TOCILIZUMAB
  20. AIMOVIG [Concomitant]
     Active Substance: ERENUMAB-AOOE
     Indication: Product used for unknown indication
  21. AIMOVIG [Concomitant]
     Active Substance: ERENUMAB-AOOE
  22. AZATHIOPRINE [Concomitant]
     Active Substance: AZATHIOPRINE
     Indication: Product used for unknown indication
  23. CANDESARTAN [Concomitant]
     Active Substance: CANDESARTAN
     Indication: Product used for unknown indication
  24. CELECOXIB [Concomitant]
     Active Substance: CELECOXIB
     Indication: Product used for unknown indication
  25. CELECOXIB [Concomitant]
     Active Substance: CELECOXIB
  26. CELECOXIB [Concomitant]
     Active Substance: CELECOXIB
  27. CELECOXIB [Concomitant]
     Active Substance: CELECOXIB
  28. CELECOXIB [Concomitant]
     Active Substance: CELECOXIB
  29. CELECOXIB [Concomitant]
     Active Substance: CELECOXIB
  30. CELECOXIB [Concomitant]
     Active Substance: CELECOXIB
  31. CETIRIZINE [Concomitant]
     Active Substance: CETIRIZINE HYDROCHLORIDE
     Indication: Product used for unknown indication
  32. CETIRIZINE [Concomitant]
     Active Substance: CETIRIZINE HYDROCHLORIDE
  33. CETIRIZINE [Concomitant]
     Active Substance: CETIRIZINE HYDROCHLORIDE
  34. CETIRIZINE [Concomitant]
     Active Substance: CETIRIZINE HYDROCHLORIDE
  35. CETIRIZINE [Concomitant]
     Active Substance: CETIRIZINE HYDROCHLORIDE
  36. CETIRIZINE [Concomitant]
     Active Substance: CETIRIZINE HYDROCHLORIDE
  37. CETIRIZINE [Concomitant]
     Active Substance: CETIRIZINE HYDROCHLORIDE
  38. CETIRIZINE [Concomitant]
     Active Substance: CETIRIZINE HYDROCHLORIDE
  39. CETIRIZINE [Concomitant]
     Active Substance: CETIRIZINE HYDROCHLORIDE
  40. CETIRIZINE [Concomitant]
     Active Substance: CETIRIZINE HYDROCHLORIDE
  41. CETIRIZINE [Concomitant]
     Active Substance: CETIRIZINE HYDROCHLORIDE
  42. CETIRIZINE [Concomitant]
     Active Substance: CETIRIZINE HYDROCHLORIDE
  43. CETIRIZINE [Concomitant]
     Active Substance: CETIRIZINE HYDROCHLORIDE
  44. DESOXIMETASONE [Concomitant]
     Active Substance: DESOXIMETASONE
     Indication: Product used for unknown indication
  45. DESOXIMETASONE [Concomitant]
     Active Substance: DESOXIMETASONE
  46. DESOXIMETASONE [Concomitant]
     Active Substance: DESOXIMETASONE
  47. DESOXIMETASONE [Concomitant]
     Active Substance: DESOXIMETASONE
  48. DESOXIMETASONE [Concomitant]
     Active Substance: DESOXIMETASONE
  49. DICLOFENAC DIETHYLAMINE [Concomitant]
     Active Substance: DICLOFENAC DIETHYLAMINE
     Indication: Product used for unknown indication
  50. DOMPERIDONE [Concomitant]
     Active Substance: DOMPERIDONE
     Indication: Product used for unknown indication
  51. DOMPERIDONE [Concomitant]
     Active Substance: DOMPERIDONE
  52. ERELZI [Concomitant]
     Active Substance: ETANERCEPT-SZZS
     Indication: Product used for unknown indication
  53. ERELZI [Concomitant]
     Active Substance: ETANERCEPT-SZZS
  54. ERELZI [Concomitant]
     Active Substance: ETANERCEPT-SZZS
  55. ERELZI [Concomitant]
     Active Substance: ETANERCEPT-SZZS
  56. ERELZI [Concomitant]
     Active Substance: ETANERCEPT-SZZS
  57. ERGOCALCIFEROL [Concomitant]
     Active Substance: ERGOCALCIFEROL
     Indication: Product used for unknown indication
  58. ERGOCALCIFEROL [Concomitant]
     Active Substance: ERGOCALCIFEROL
  59. FINACEA [Concomitant]
     Active Substance: AZELAIC ACID
     Indication: Product used for unknown indication
  60. FINACEA [Concomitant]
     Active Substance: AZELAIC ACID
  61. FLUMETHASONE PIVALATE [Concomitant]
     Active Substance: FLUMETHASONE PIVALATE
     Indication: Product used for unknown indication
  62. FLUMETHASONE PIVALATE [Concomitant]
     Active Substance: FLUMETHASONE PIVALATE
  63. FLUMETHASONE PIVALATE [Concomitant]
     Active Substance: FLUMETHASONE PIVALATE
  64. FLUMETHASONE PIVALATE [Concomitant]
     Active Substance: FLUMETHASONE PIVALATE
  65. FLUTICASONE PROPIONATE [Concomitant]
     Active Substance: FLUTICASONE PROPIONATE
     Indication: Product used for unknown indication
  66. FOLIC ACID [Concomitant]
     Active Substance: FOLIC ACID
     Indication: Product used for unknown indication
  67. FOLIC ACID [Concomitant]
     Active Substance: FOLIC ACID
  68. FOLIC ACID [Concomitant]
     Active Substance: FOLIC ACID
  69. FOLIC ACID [Concomitant]
     Active Substance: FOLIC ACID
  70. FOLIC ACID [Concomitant]
     Active Substance: FOLIC ACID
  71. FOLIC ACID [Concomitant]
     Active Substance: FOLIC ACID
  72. FOLIC ACID [Concomitant]
     Active Substance: FOLIC ACID
  73. FOLIC ACID [Concomitant]
     Active Substance: FOLIC ACID
  74. FOSAMAX [Concomitant]
     Active Substance: ALENDRONATE SODIUM
     Indication: Product used for unknown indication
  75. FOSAMAX [Concomitant]
     Active Substance: ALENDRONATE SODIUM
  76. GOLD SODIUM THIOMALATE [Concomitant]
     Active Substance: GOLD SODIUM THIOMALATE
     Indication: Product used for unknown indication
  77. GOLD SODIUM THIOMALATE [Concomitant]
     Active Substance: GOLD SODIUM THIOMALATE
  78. HYDROMORPHONE [Concomitant]
     Active Substance: HYDROMORPHONE
     Indication: Product used for unknown indication
  79. HYDROMORPHONE [Concomitant]
     Active Substance: HYDROMORPHONE
  80. HYRIMOZ [Concomitant]
     Active Substance: ADALIMUMAB-ADAZ
     Indication: Product used for unknown indication
  81. HYRIMOZ [Concomitant]
     Active Substance: ADALIMUMAB-ADAZ
  82. HYRIMOZ [Concomitant]
     Active Substance: ADALIMUMAB-ADAZ
  83. HYRIMOZ [Concomitant]
     Active Substance: ADALIMUMAB-ADAZ
  84. HYRIMOZ [Concomitant]
     Active Substance: ADALIMUMAB-ADAZ
  85. HYRIMOZ [Concomitant]
     Active Substance: ADALIMUMAB-ADAZ
  86. HYRIMOZ [Concomitant]
     Active Substance: ADALIMUMAB-ADAZ
  87. HYRIMOZ [Concomitant]
     Active Substance: ADALIMUMAB-ADAZ
     Dosage: SOLUTION?SUBCUTANEOUS
  88. INFLIXIMAB [Concomitant]
     Active Substance: INFLIXIMAB
     Indication: Product used for unknown indication
  89. INFLIXIMAB [Concomitant]
     Active Substance: INFLIXIMAB
  90. INFLIXIMAB [Concomitant]
     Active Substance: INFLIXIMAB
  91. KEVZARA [Concomitant]
     Active Substance: SARILUMAB
     Indication: Product used for unknown indication
  92. KEVZARA [Concomitant]
     Active Substance: SARILUMAB
  93. LAMOTRIGINE [Concomitant]
     Active Substance: LAMOTRIGINE
     Indication: Product used for unknown indication
  94. LAMOTRIGINE [Concomitant]
     Active Substance: LAMOTRIGINE
  95. LAMOTRIGINE [Concomitant]
     Active Substance: LAMOTRIGINE
  96. LAMOTRIGINE [Concomitant]
     Active Substance: LAMOTRIGINE
  97. LAMOTRIGINE [Concomitant]
     Active Substance: LAMOTRIGINE
  98. LAMOTRIGINE [Concomitant]
     Active Substance: LAMOTRIGINE
  99. LAMOTRIGINE [Concomitant]
     Active Substance: LAMOTRIGINE
  100. LAMOTRIGINE [Concomitant]
     Active Substance: LAMOTRIGINE
  101. LAMOTRIGINE [Concomitant]
     Active Substance: LAMOTRIGINE
  102. LAMOTRIGINE [Concomitant]
     Active Substance: LAMOTRIGINE
  103. LEVOMILNACIPRAN [Concomitant]
     Active Substance: LEVOMILNACIPRAN
     Indication: Product used for unknown indication
  104. MAGNESIUM [Concomitant]
     Active Substance: MAGNESIUM
     Indication: Product used for unknown indication
  105. METHOTREXATE [Concomitant]
     Active Substance: METHOTREXATE
     Indication: Product used for unknown indication
  106. METHOTREXATE [Concomitant]
     Active Substance: METHOTREXATE
  107. METHOTREXATE [Concomitant]
     Active Substance: METHOTREXATE
  108. METHOTREXATE [Concomitant]
     Active Substance: METHOTREXATE
  109. METHOTREXATE [Concomitant]
     Active Substance: METHOTREXATE
  110. METHOTREXATE [Concomitant]
     Active Substance: METHOTREXATE
  111. METHOTREXATE [Concomitant]
     Active Substance: METHOTREXATE
  112. METHOTREXATE [Concomitant]
     Active Substance: METHOTREXATE
  113. METHOTREXATE [Concomitant]
     Active Substance: METHOTREXATE
  114. METHOTREXATE [Concomitant]
     Active Substance: METHOTREXATE
  115. METHYLPREDNISOLONE ACETATE [Concomitant]
     Active Substance: METHYLPREDNISOLONE ACETATE
     Indication: Product used for unknown indication
  116. MINOCYCLINE HYDROCHLORIDE [Concomitant]
     Active Substance: MINOCYCLINE HYDROCHLORIDE
     Indication: Product used for unknown indication
  117. MYRBETRIQ [Concomitant]
     Active Substance: MIRABEGRON
     Indication: Product used for unknown indication
  118. MYRBETRIQ [Concomitant]
     Active Substance: MIRABEGRON
  119. MYRBETRIQ [Concomitant]
     Active Substance: MIRABEGRON
  120. MYRBETRIQ [Concomitant]
     Active Substance: MIRABEGRON
  121. MYRBETRIQ [Concomitant]
     Active Substance: MIRABEGRON
     Dosage: TABLET (EXTENDED?RELEASE)
  122. MYRBETRIQ [Concomitant]
     Active Substance: MIRABEGRON
  123. MYRBETRIQ [Concomitant]
     Active Substance: MIRABEGRON
  124. NAPROXEN [Concomitant]
     Active Substance: NAPROXEN
     Indication: Product used for unknown indication
  125. NUCALA [Concomitant]
     Active Substance: MEPOLIZUMAB
     Indication: Product used for unknown indication
  126. OTEZLA [Concomitant]
     Active Substance: APREMILAST
     Indication: Product used for unknown indication
  127. OTEZLA [Concomitant]
     Active Substance: APREMILAST
  128. OXYCODONE [Concomitant]
     Active Substance: OXYCODONE
     Indication: Product used for unknown indication
  129. PHENYLEPHRINE HYDROCHLORIDE [Concomitant]
     Active Substance: PHENYLEPHRINE HYDROCHLORIDE
     Indication: Product used for unknown indication
  130. PHENYLEPHRINE HYDROCHLORIDE [Concomitant]
     Active Substance: PHENYLEPHRINE HYDROCHLORIDE
  131. PHOSPHORUS [Concomitant]
     Active Substance: PHOSPHORUS
     Indication: Product used for unknown indication
  132. PHTHALYLSULFATHIAZOLE [Concomitant]
     Active Substance: PHTHALYLSULFATHIAZOLE
     Indication: Product used for unknown indication
  133. PHTHALYLSULFATHIAZOLE [Concomitant]
     Active Substance: PHTHALYLSULFATHIAZOLE
  134. PHTHALYLSULFATHIAZOLE [Concomitant]
     Active Substance: PHTHALYLSULFATHIAZOLE
  135. PHTHALYLSULFATHIAZOLE [Concomitant]
     Active Substance: PHTHALYLSULFATHIAZOLE
  136. PHTHALYLSULFATHIAZOLE [Concomitant]
     Active Substance: PHTHALYLSULFATHIAZOLE
  137. PREDNISONE [Concomitant]
     Active Substance: PREDNISONE
     Indication: Product used for unknown indication
  138. PREDNISONE [Concomitant]
     Active Substance: PREDNISONE
  139. PREDNISONE [Concomitant]
     Active Substance: PREDNISONE
  140. PREDNISONE [Concomitant]
     Active Substance: PREDNISONE
  141. PREDNISONE [Concomitant]
     Active Substance: PREDNISONE
  142. PREDNISONE [Concomitant]
     Active Substance: PREDNISONE
  143. PSEUDOEPHEDRINE HYDROCHLORIDE [Concomitant]
     Active Substance: PSEUDOEPHEDRINE HYDROCHLORIDE
     Indication: Product used for unknown indication
  144. PSEUDOEPHEDRINE HYDROCHLORIDE [Concomitant]
     Active Substance: PSEUDOEPHEDRINE HYDROCHLORIDE
  145. PSEUDOEPHEDRINE HYDROCHLORIDE [Concomitant]
     Active Substance: PSEUDOEPHEDRINE HYDROCHLORIDE
  146. PSEUDOEPHEDRINE HYDROCHLORIDE [Concomitant]
     Active Substance: PSEUDOEPHEDRINE HYDROCHLORIDE
  147. PSEUDOEPHEDRINE HYDROCHLORIDE [Concomitant]
     Active Substance: PSEUDOEPHEDRINE HYDROCHLORIDE
  148. PSEUDOEPHEDRINE HYDROCHLORIDE [Concomitant]
     Active Substance: PSEUDOEPHEDRINE HYDROCHLORIDE
  149. RAMIPRIL [Concomitant]
     Active Substance: RAMIPRIL
     Indication: Product used for unknown indication
  150. RAMIPRIL [Concomitant]
     Active Substance: RAMIPRIL
  151. RAMIPRIL [Concomitant]
     Active Substance: RAMIPRIL
  152. RAMIPRIL [Concomitant]
     Active Substance: RAMIPRIL
  153. RANITIDINE HYDROCHLORIDE [Concomitant]
     Active Substance: RANITIDINE HYDROCHLORIDE
     Indication: Product used for unknown indication
  154. RANITIDINE HYDROCHLORIDE [Concomitant]
     Active Substance: RANITIDINE HYDROCHLORIDE
  155. RANITIDINE HYDROCHLORIDE [Concomitant]
     Active Substance: RANITIDINE HYDROCHLORIDE
  156. RANITIDINE HYDROCHLORIDE [Concomitant]
     Active Substance: RANITIDINE HYDROCHLORIDE
  157. RITUXIMAB [Concomitant]
     Active Substance: RITUXIMAB
     Indication: Product used for unknown indication
  158. RITUXIMAB [Concomitant]
     Active Substance: RITUXIMAB
  159. RITUXIMAB [Concomitant]
     Active Substance: RITUXIMAB
  160. RITUXIMAB [Concomitant]
     Active Substance: RITUXIMAB
  161. RITUXIMAB [Concomitant]
     Active Substance: RITUXIMAB
  162. LEFLUNOMIDE [Concomitant]
     Active Substance: LEFLUNOMIDE
     Indication: Product used for unknown indication
  163. LEFLUNOMIDE [Concomitant]
     Active Substance: LEFLUNOMIDE
  164. LEFLUNOMIDE [Concomitant]
     Active Substance: LEFLUNOMIDE
  165. LEFLUNOMIDE [Concomitant]
     Active Substance: LEFLUNOMIDE
  166. LEFLUNOMIDE [Concomitant]
     Active Substance: LEFLUNOMIDE
  167. LEFLUNOMIDE [Concomitant]
     Active Substance: LEFLUNOMIDE
  168. LEFLUNOMIDE [Concomitant]
     Active Substance: LEFLUNOMIDE
  169. LEFLUNOMIDE [Concomitant]
     Active Substance: LEFLUNOMIDE
  170. LEFLUNOMIDE [Concomitant]
     Active Substance: LEFLUNOMIDE
  171. SIMPONI [Concomitant]
     Active Substance: GOLIMUMAB
     Indication: Product used for unknown indication
  172. SIMPONI [Concomitant]
     Active Substance: GOLIMUMAB
     Dosage: SOLUTION?SUBCUTANEOUS
  173. SULFASALAZINE [Concomitant]
     Active Substance: SULFASALAZINE
     Indication: Product used for unknown indication
  174. SULFASALAZINE [Concomitant]
     Active Substance: SULFASALAZINE
  175. SULFASALAZINE [Concomitant]
     Active Substance: SULFASALAZINE
  176. SULFASALAZINE [Concomitant]
     Active Substance: SULFASALAZINE
  177. SULFASALAZINE [Concomitant]
     Active Substance: SULFASALAZINE
  178. SULFASALAZINE [Concomitant]
     Active Substance: SULFASALAZINE
  179. SULFASALAZINE [Concomitant]
     Active Substance: SULFASALAZINE
  180. SULFASALAZINE [Concomitant]
     Active Substance: SULFASALAZINE
  181. SULFASALAZINE [Concomitant]
     Active Substance: SULFASALAZINE
  182. SULFASALAZINE [Concomitant]
     Active Substance: SULFASALAZINE
  183. SULFASALAZINE [Concomitant]
     Active Substance: SULFASALAZINE
  184. SULFASALAZINE [Concomitant]
     Active Substance: SULFASALAZINE
  185. SULFASALAZINE [Concomitant]
     Active Substance: SULFASALAZINE
  186. SULFASALAZINE [Concomitant]
     Active Substance: SULFASALAZINE
  187. SULFASALAZINE [Concomitant]
     Active Substance: SULFASALAZINE
  188. SULFASALAZINE [Concomitant]
     Active Substance: SULFASALAZINE
  189. SULFASALAZINE [Concomitant]
     Active Substance: SULFASALAZINE
  190. SULFASALAZINE [Concomitant]
     Active Substance: SULFASALAZINE
  191. SULFASALAZINE [Concomitant]
     Active Substance: SULFASALAZINE
  192. SULFASALAZINE [Concomitant]
     Active Substance: SULFASALAZINE
  193. SULFASALAZINE [Concomitant]
     Active Substance: SULFASALAZINE
  194. SULFASALAZINE [Concomitant]
     Active Substance: SULFASALAZINE
  195. SULFASALAZINE [Concomitant]
     Active Substance: SULFASALAZINE
  196. SULFASALAZINE [Concomitant]
     Active Substance: SULFASALAZINE
  197. SULFASALAZINE [Concomitant]
     Active Substance: SULFASALAZINE
  198. SULFASALAZINE [Concomitant]
     Active Substance: SULFASALAZINE
  199. SULFASALAZINE [Concomitant]
     Active Substance: SULFASALAZINE
  200. SULFASALAZINE [Concomitant]
     Active Substance: SULFASALAZINE
  201. SULFASALAZINE [Concomitant]
     Active Substance: SULFASALAZINE
  202. SULFASALAZINE [Concomitant]
     Active Substance: SULFASALAZINE
  203. SULFASALAZINE [Concomitant]
     Active Substance: SULFASALAZINE
  204. SULFASALAZINE [Concomitant]
     Active Substance: SULFASALAZINE
  205. SULFASALAZINE [Concomitant]
     Active Substance: SULFASALAZINE
  206. SULFASALAZINE [Concomitant]
     Active Substance: SULFASALAZINE
  207. TOPIRAMATE [Concomitant]
     Active Substance: TOPIRAMATE
     Indication: Product used for unknown indication
  208. TOPIRAMATE [Concomitant]
     Active Substance: TOPIRAMATE
  209. TOPIRAMATE [Concomitant]
     Active Substance: TOPIRAMATE
  210. TOPIRAMATE [Concomitant]
     Active Substance: TOPIRAMATE
  211. TOPIRAMATE [Concomitant]
     Active Substance: TOPIRAMATE
  212. TOPIRAMATE [Concomitant]
     Active Substance: TOPIRAMATE
  213. TOPIRAMATE [Concomitant]
     Active Substance: TOPIRAMATE
  214. TOPIRAMATE [Concomitant]
     Active Substance: TOPIRAMATE
  215. TOPIRAMATE [Concomitant]
     Active Substance: TOPIRAMATE
  216. TOPIRAMATE [Concomitant]
     Active Substance: TOPIRAMATE
  217. TOPIRAMATE [Concomitant]
     Active Substance: TOPIRAMATE
  218. COSENTYX [Concomitant]
     Active Substance: SECUKINUMAB
     Indication: Product used for unknown indication
  219. TRAMADOL HYDROCHLORIDE [Concomitant]
     Active Substance: TRAMADOL HYDROCHLORIDE
     Indication: Product used for unknown indication
  220. TRAZODONE [Concomitant]
     Active Substance: TRAZODONE HYDROCHLORIDE
     Indication: Product used for unknown indication
  221. TRAZODONE [Concomitant]
     Active Substance: TRAZODONE HYDROCHLORIDE
  222. TRAZODONE [Concomitant]
     Active Substance: TRAZODONE HYDROCHLORIDE
  223. TRAZODONE [Concomitant]
     Active Substance: TRAZODONE HYDROCHLORIDE
  224. TRETINOIN [Concomitant]
     Active Substance: TRETINOIN
     Indication: Product used for unknown indication
  225. VITAMIN C [Concomitant]
     Active Substance: ASCORBIC ACID
     Indication: Product used for unknown indication
  226. VITAMIN C [Concomitant]
     Active Substance: ASCORBIC ACID
  227. VITAMIN C [Concomitant]
     Active Substance: ASCORBIC ACID
  228. VITAMIN C [Concomitant]
     Active Substance: ASCORBIC ACID
  229. VITAMIN C [Concomitant]
     Active Substance: ASCORBIC ACID
  230. HYDROXYCHLOROQUINE [Concomitant]
     Active Substance: HYDROXYCHLOROQUINE
     Indication: Product used for unknown indication
  231. HYDROXYCHLOROQUINE [Concomitant]
     Active Substance: HYDROXYCHLOROQUINE
  232. HYDROXYCHLOROQUINE [Concomitant]
     Active Substance: HYDROXYCHLOROQUINE
  233. HYDROXYCHLOROQUINE [Concomitant]
     Active Substance: HYDROXYCHLOROQUINE
  234. HYDROXYCHLOROQUINE [Concomitant]
     Active Substance: HYDROXYCHLOROQUINE
  235. HYDROXYCHLOROQUINE [Concomitant]
     Active Substance: HYDROXYCHLOROQUINE
  236. HYDROXYCHLOROQUINE [Concomitant]
     Active Substance: HYDROXYCHLOROQUINE
  237. SIRUKUMAB [Concomitant]
     Active Substance: SIRUKUMAB
     Indication: Product used for unknown indication

REACTIONS (2)
  - Congenital anomaly [Unknown]
  - Foetal exposure during pregnancy [Unknown]
